FAERS Safety Report 17769388 (Version 1)
Quarter: 2020Q2

REPORT INFORMATION
  Report Type: Spontaneous
  Country: DE (occurrence: DE)
  Receive Date: 20200512
  Receipt Date: 20200512
  Transmission Date: 20200714
  Serious: Yes (Hospitalization, Other)
  Sender: FDA-Public Use
  Company Number: DE-VISTAPHARM, INC.-VER202005-000897

PATIENT

DRUGS (1)
  1. METHADONE [Suspect]
     Active Substance: METHADONE HYDROCHLORIDE
     Indication: GLIOMA
     Dosage: 2.5 MG TWICE DAILY

REACTIONS (1)
  - Loss of consciousness [Unknown]
